FAERS Safety Report 6331913-1 (Version None)
Quarter: 2009Q3

REPORT INFORMATION
  Report Type: 
  Country: None (occurrence: None)
  Receive Date: 20090826
  Receipt Date: 20090818
  Transmission Date: 20100115
  Serious: No
  Sender: FDA-Public Use
  Company Number: 20097277

PATIENT
  Sex: Female

DRUGS (4)
  1. LIORESAL [Suspect]
     Indication: MUSCLE SPASTICITY
     Dosage: MCG, DAILY, INTRATHECAL
     Route: 037
  2. FENTANYL 4000 MCG/ML [Concomitant]
  3. BUPIVICAINE 2% [Concomitant]
  4. CLONIDINE 300 MCG/ML [Concomitant]

REACTIONS (5)
  - CATHETER RELATED COMPLICATION [None]
  - IRRITABILITY [None]
  - NAUSEA [None]
  - PAIN [None]
  - VOMITING [None]
